FAERS Safety Report 13429525 (Version 20)
Quarter: 2022Q3

REPORT INFORMATION
  Report Type: Spontaneous
  Country: GB (occurrence: GB)
  Receive Date: 20170411
  Receipt Date: 20220714
  Transmission Date: 20221027
  Serious: Yes (Hospitalization, Other)
  Sender: FDA-Public Use
  Company Number: GB-MYLANLABS-2017M1021708

PATIENT
  Age: 63 Year
  Sex: Male

DRUGS (14)
  1. CLOZARIL [Suspect]
     Active Substance: CLOZAPINE
     Indication: Schizophrenia
     Dosage: UNK
     Route: 048
     Dates: start: 20161110
  2. CLOZARIL [Suspect]
     Active Substance: CLOZAPINE
     Dosage: UNK
     Route: 048
  3. CLOZARIL [Suspect]
     Active Substance: CLOZAPINE
     Dosage: 400 MILLIGRAM, QD (200 MG, BID)/10-NOV-2017
     Route: 048
     Dates: end: 20191230
  4. CLOZARIL [Suspect]
     Active Substance: CLOZAPINE
     Dosage: START DATE: 12-OCT-2020
     Route: 048
     Dates: end: 20201028
  5. CLOZARIL [Suspect]
     Active Substance: CLOZAPINE
     Dosage: 800 MILLIGRAM, QD/ START DATE: 10-NOV-2017
     Route: 065
     Dates: end: 20191230
  6. CLOZARIL [Suspect]
     Active Substance: CLOZAPINE
     Dosage: 200 MILLIGRAM, BID/ START DATE: 2017
     Route: 048
     Dates: end: 20191230
  7. CLOZARIL [Suspect]
     Active Substance: CLOZAPINE
     Dosage: UNK
     Route: 065
  8. CLOZARIL [Suspect]
     Active Substance: CLOZAPINE
     Dosage: 800 MILLIGRAM, QD (200 MILLIGRAM, BID )/START DATE: 10-NOV-2017
     Route: 048
     Dates: end: 20191230
  9. CLOZARIL [Suspect]
     Active Substance: CLOZAPINE
     Dosage: START DATE: 10-NOV-2016
     Route: 048
  10. CLOZARIL [Suspect]
     Active Substance: CLOZAPINE
     Dosage: 400 MILLIGRAM, QD (200 MG, BID)
     Route: 048
     Dates: start: 2017, end: 20191230
  11. CLOZARIL [Suspect]
     Active Substance: CLOZAPINE
     Dosage: 800 MILLIGRAM, QD (200 MILLIGRAM, BID )
     Route: 048
     Dates: start: 20171110, end: 20191230
  12. AMISULPRIDE [Suspect]
     Active Substance: AMISULPRIDE
     Indication: Product used for unknown indication
     Dosage: UNK (TOP DOSE)
     Route: 065
  13. ARIPIPRAZOLE [Suspect]
     Active Substance: ARIPIPRAZOLE
     Indication: Product used for unknown indication
     Dosage: 400 MILLIGRAM, MONTHLY, DEPOTE
     Route: 065
  14. ARIPIPRAZOLE [Suspect]
     Active Substance: ARIPIPRAZOLE
     Dosage: 400 MILLIGRAM, MONTHLY (400 MILLIGRAM, QMO)
     Route: 065

REACTIONS (11)
  - Schizophrenia [Unknown]
  - Antipsychotic drug level increased [Unknown]
  - Neutropenia [Recovered/Resolved]
  - Sedation [Unknown]
  - Salivary hypersecretion [Unknown]
  - Haemoglobin decreased [Recovered/Resolved]
  - White blood cell count decreased [Recovered/Resolved]
  - Delusion [Unknown]
  - Agitation [Unknown]
  - Neutrophil count decreased [Recovering/Resolving]
  - Seizure [Unknown]

NARRATIVE: CASE EVENT DATE: 20170206
